FAERS Safety Report 5811783-8 (Version None)
Quarter: 2008Q3

REPORT INFORMATION
  Report Type: 
  Country: None (occurrence: None)
  Receive Date: 20080715
  Receipt Date: 20080715
  Transmission Date: 20090109
  Serious: No
  Sender: FDA-Public Use
  Company Number: None

PATIENT
  Age: 51 Year
  Sex: Male
  Weight: 99.7913 kg

DRUGS (1)
  1. CIPROFLOXICIN 500 MG. ROUND WHITE OVAL [Suspect]
     Indication: URINARY TRACT INFECTION
     Dosage: 500 MG. 2 PER DAY PO
     Route: 048
     Dates: start: 20060714, end: 20060724

REACTIONS (8)
  - ANXIETY [None]
  - ARTHRALGIA [None]
  - DEPRESSION [None]
  - INSOMNIA [None]
  - NERVOUS SYSTEM DISORDER [None]
  - PANIC ATTACK [None]
  - QUALITY OF LIFE DECREASED [None]
  - TENDON PAIN [None]
